FAERS Safety Report 22278376 (Version 1)
Quarter: 2023Q2

REPORT INFORMATION
  Report Type: Spontaneous
  Country: US (occurrence: None)
  Receive Date: 20230502
  Receipt Date: 20230502
  Transmission Date: 20230721
  Serious: Yes (Other)
  Sender: FDA-Public Use
  Company Number: None

PATIENT
  Sex: Female

DRUGS (38)
  1. ENBREL [Suspect]
     Active Substance: ETANERCEPT
     Indication: Juvenile idiopathic arthritis
     Route: 058
     Dates: start: 20180208
  2. AJOVY [Concomitant]
     Active Substance: FREMANEZUMAB-VFRM
  3. AMITRIPTYLINE [Concomitant]
     Active Substance: AMITRIPTYLINE
  4. AMLODIPINE [Concomitant]
     Active Substance: AMLODIPINE BESYLATE
  5. AMLODIPINE [Concomitant]
  6. ATORVASTATIN [Concomitant]
     Active Substance: ATORVASTATIN
  7. AZITHROMYCIN [Concomitant]
     Active Substance: AZITHROMYCIN
  8. BOTOX [Concomitant]
     Active Substance: ONABOTULINUMTOXINA
  9. CALCITONIN SPR [Concomitant]
  10. CELEBREX [Concomitant]
     Active Substance: CELECOXIB
  11. CYCLOBENZAPRINE [Concomitant]
     Active Substance: CYCLOBENZAPRINE
  12. CYTOMEL [Concomitant]
     Active Substance: LIOTHYRONINE SODIUM
  13. DEXILANT [Concomitant]
     Active Substance: DEXLANSOPRAZOLE
  14. ELETRIPTAN [Concomitant]
     Active Substance: ELETRIPTAN
  15. FOLIC ACID [Concomitant]
     Active Substance: FOLIC ACID
  16. GABAPENTIN [Concomitant]
     Active Substance: GABAPENTIN
  17. GAVILYTE-G SOL [Concomitant]
  18. HYDROCHLOROTHIAZIDE [Concomitant]
     Active Substance: HYDROCHLOROTHIAZIDE
  19. ACETAMINOPHEN\HYDROCODONE [Concomitant]
     Active Substance: ACETAMINOPHEN\HYDROCODONE
  20. A-HYDROCORT [Concomitant]
     Active Substance: HYDROCORTISONE SODIUM SUCCINATE
  21. METHOCARBAMOL [Concomitant]
     Active Substance: METHOCARBAMOL
  22. METHOTREXATE [Concomitant]
     Active Substance: METHOTREXATE
  23. METHYLPRED [Concomitant]
  24. NURTEC ODT [Concomitant]
     Active Substance: RIMEGEPANT SULFATE
  25. ONDANSETRON [Concomitant]
     Active Substance: ONDANSETRON
  26. PILOCARPINE [Concomitant]
     Active Substance: PILOCARPINE
  27. PROZAC [Concomitant]
     Active Substance: FLUOXETINE HYDROCHLORIDE
  28. REGLAN [Concomitant]
     Active Substance: METOCLOPRAMIDE HYDROCHLORIDE
  29. SPIRONOLACT [Concomitant]
  30. SYNTHROID [Concomitant]
     Active Substance: LEVOTHYROXINE SODIUM
  31. TIZANIDINE [Concomitant]
     Active Substance: TIZANIDINE
  32. TRAZODONE [Concomitant]
     Active Substance: TRAZODONE HYDROCHLORIDE
  33. TRULANCE [Concomitant]
  34. VOLTAREN [Concomitant]
     Active Substance: DICLOFENAC SODIUM
  35. XELJANZ [Concomitant]
     Active Substance: TOFACITINIB CITRATE
  36. XIIDRA DRO [Concomitant]
  37. ZOFRAN [Concomitant]
  38. ZYRTEC ALLGY [Concomitant]

REACTIONS (2)
  - Surgery [None]
  - Therapy interrupted [None]
